FAERS Safety Report 19524597 (Version 1)
Quarter: 2021Q3

REPORT INFORMATION
  Report Type: Spontaneous
  Country: US (occurrence: US)
  Receive Date: 20210712
  Receipt Date: 20210712
  Transmission Date: 20211014
  Serious: Yes (Other)
  Sender: FDA-Public Use
  Company Number: None

PATIENT
  Age: 44 Year
  Sex: Female
  Weight: 48.6 kg

DRUGS (1)
  1. NP THYROID [Suspect]
     Active Substance: LEVOTHYROXINE\LIOTHYRONINE
     Indication: AUTOIMMUNE THYROIDITIS
     Dosage: ?          QUANTITY:90 TABLET(S);?
     Route: 048
     Dates: start: 20190101, end: 20210701

REACTIONS (9)
  - Product measured potency issue [None]
  - Product substitution issue [None]
  - Recalled product [None]
  - Disturbance in attention [None]
  - Therapy non-responder [None]
  - Hypothyroidism [None]
  - Therapy interrupted [None]
  - Poor quality sleep [None]
  - Depressed mood [None]

NARRATIVE: CASE EVENT DATE: 20210601
